FAERS Safety Report 12652666 (Version 2)
Quarter: 2016Q3

REPORT INFORMATION
  Report Type: Spontaneous
  Country: US (occurrence: US)
  Receive Date: 20160815
  Receipt Date: 20160831
  Transmission Date: 20161109
  Serious: Yes (Other)
  Sender: FDA-Public Use
  Company Number: US-AKORN PHARMACEUTICALS-2016AKN00520

PATIENT
  Age: 49 Year
  Sex: Female

DRUGS (10)
  1. VALTREX [Concomitant]
     Active Substance: VALACYCLOVIR HYDROCHLORIDE
     Dosage: UNK, AS NEEDED
  2. GINGKO BILOBA [Concomitant]
  3. GENTLE IRON [Concomitant]
  4. ACIDOPHILUS [Concomitant]
     Active Substance: LACTOBACILLUS ACIDOPHILUS
  5. VITAMIN D [Concomitant]
     Active Substance: CHOLECALCIFEROL
  6. ASPIRIN. [Concomitant]
     Active Substance: ASPIRIN
  7. MYORISAN [Suspect]
     Active Substance: ISOTRETINOIN
     Indication: ACNE
     Dosage: 10 MG, UNK
     Route: 048
     Dates: start: 20160607, end: 20160803
  8. NARATRIPTAN [Concomitant]
     Active Substance: NARATRIPTAN HYDROCHLORIDE
     Dosage: UNK, AS NEEDED
  9. TEA [Concomitant]
     Active Substance: TEA LEAF
  10. MELATONIN [Concomitant]
     Active Substance: MELATONIN

REACTIONS (5)
  - Abnormal behaviour [Recovered/Resolved]
  - Affect lability [Recovered/Resolved]
  - Anger [Recovered/Resolved]
  - Mood altered [Recovered/Resolved]
  - Depressed mood [Recovered/Resolved]

NARRATIVE: CASE EVENT DATE: 201607
